FAERS Safety Report 11264471 (Version 2)
Quarter: 2015Q3

REPORT INFORMATION
  Report Type: Spontaneous
  Country: US (occurrence: US)
  Receive Date: 20150713
  Receipt Date: 20150814
  Transmission Date: 20151125
  Serious: No
  Sender: FDA-Public Use
  Company Number: US-JNJFOC-20150620284

PATIENT
  Sex: Female
  Weight: 76.66 kg

DRUGS (1)
  1. LEVAQUIN [Suspect]
     Active Substance: LEVOFLOXACIN
     Indication: SINUSITIS
     Dosage: ONCE DAY
     Route: 048

REACTIONS (5)
  - Abasia [Not Recovered/Not Resolved]
  - Drug dose omission [Not Recovered/Not Resolved]
  - Adverse event [Unknown]
  - Bladder disorder [Not Recovered/Not Resolved]
  - Gait disturbance [Unknown]
